FAERS Safety Report 7392003-2 (Version None)
Quarter: 2011Q2

REPORT INFORMATION
  Report Type: 
  Country: None (occurrence: None)
  Receive Date: 20110404
  Receipt Date: 20110330
  Transmission Date: 20111010
  Serious: Yes (Other)
  Sender: FDA-Public Use
  Company Number: US-PFIZER INC-2006081901

PATIENT
  Sex: Female

DRUGS (6)
  1. PROVERA [Suspect]
     Indication: MENOPAUSE
  2. PREMARIN [Suspect]
     Indication: HORMONE REPLACEMENT THERAPY
     Dosage: UNK
     Route: 048
     Dates: start: 19800101, end: 20011001
  3. PROVERA [Suspect]
     Indication: HORMONE REPLACEMENT THERAPY
     Dosage: UNK
     Route: 048
  4. MEDROXYPROGESTERONE ACETATE [Suspect]
     Indication: MENOPAUSE
  5. PREMARIN [Suspect]
     Indication: MENOPAUSE
  6. MEDROXYPROGESTERONE ACETATE [Suspect]
     Indication: HORMONE REPLACEMENT THERAPY
     Dosage: UNK
     Route: 048

REACTIONS (1)
  - BREAST CANCER [None]
